FAERS Safety Report 14307875 (Version 1)
Quarter: 2017Q4

REPORT INFORMATION
  Report Type: Spontaneous
  Country: FR (occurrence: FR)
  Receive Date: 20171220
  Receipt Date: 20171220
  Transmission Date: 20180321
  Serious: Yes (Other)
  Sender: FDA-Public Use
  Company Number: FR-LPDUSPRD-20171717

PATIENT
  Age: 32 Year
  Sex: Female

DRUGS (1)
  1. FERINJECT [Suspect]
     Active Substance: FERRIC CARBOXYMALTOSE
     Dosage: UNKNOWN
     Route: 041
     Dates: start: 20171130

REACTIONS (5)
  - Discomfort [Unknown]
  - Bronchospasm [Unknown]
  - Tachycardia [Unknown]
  - Blood pressure decreased [Unknown]
  - Malaise [Unknown]

NARRATIVE: CASE EVENT DATE: 20171130
